FAERS Safety Report 4961667-2 (Version None)
Quarter: 2006Q2

REPORT INFORMATION
  Report Type: 
  Country: None (occurrence: None)
  Receive Date: 20060404
  Receipt Date: 20060324
  Transmission Date: 20061013
  Serious: Yes (Other)
  Sender: FDA-Public Use
  Company Number: GB-JNJFOC-20060306598

PATIENT
  Age: 56 Year
  Sex: Female
  Weight: 51 kg

DRUGS (8)
  1. REMICADE [Suspect]
     Indication: RHEUMATOID ARTHRITIS
     Route: 042
  2. METHOTREXATE [Concomitant]
     Indication: RHEUMATOID ARTHRITIS
     Route: 048
  3. FOSAMAX [Concomitant]
     Indication: OSTEOPOROSIS
     Route: 048
  4. FOLIC ACID [Concomitant]
     Route: 048
  5. TEMAZEPAM [Concomitant]
     Indication: INSOMNIA
     Route: 048
  6. DIHYDROCODEINE [Concomitant]
     Indication: PAIN
  7. DOTHIEPIN HYDROCHLORIDE [Concomitant]
  8. CALCIUM GLUCONATE [Concomitant]

REACTIONS (2)
  - DERMATITIS PSORIASIFORM [None]
  - HERPES SIMPLEX [None]
